FAERS Safety Report 20866754 (Version 2)
Quarter: 2022Q4

REPORT INFORMATION
  Report Type: Spontaneous
  Country: US (occurrence: US)
  Receive Date: 20220524
  Receipt Date: 20221018
  Transmission Date: 20230112
  Serious: Yes (Hospitalization, Other)
  Sender: FDA-Public Use
  Company Number: US-PFIZER INC-202200736175

PATIENT
  Age: 28 Year
  Sex: Female

DRUGS (1)
  1. XELJANZ [Suspect]
     Active Substance: TOFACITINIB CITRATE
     Dosage: UNK
     Dates: start: 20220423, end: 20220914

REACTIONS (7)
  - Kidney infection [Unknown]
  - Urinary tract infection [Unknown]
  - Gastrointestinal disorder [Unknown]
  - Nausea [Unknown]
  - Abdominal discomfort [Unknown]
  - Pain in extremity [Recovering/Resolving]
  - Varicose vein [Recovering/Resolving]
